FAERS Safety Report 7207559-X (Version None)
Quarter: 2010Q4

REPORT INFORMATION
  Report Type: 
  Country: None (occurrence: None)
  Receive Date: 20101217
  Receipt Date: 20101202
  Transmission Date: 20110411
  Serious: Yes (Hospitalization)
  Sender: FDA-Public Use
  Company Number: 1000017668

PATIENT
  Age: 79 Year
  Sex: Female

DRUGS (1)
  1. CITALOPRAM (CITALOPRAM HYDROBROMIDE) (TABLETS) [Suspect]
     Indication: DEPRESSION
     Dosage: 20 MG (20 MG, 1 IN 1 D), ORAL
     Route: 048
     Dates: start: 20101016, end: 20101021

REACTIONS (2)
  - FALL [None]
  - TREMOR [None]
